FAERS Safety Report 23783049 (Version 2)
Quarter: 2025Q3

REPORT INFORMATION
  Report Type: Report from Study
  Country: CA (occurrence: CA)
  Receive Date: 20240425
  Receipt Date: 20250919
  Transmission Date: 20251021
  Serious: Yes (Other)
  Sender: AUROBINDO
  Company Number: CA-AUROBINDO-AUR-APL-2024-018733

PATIENT
  Age: 57 Year
  Sex: Female

DRUGS (10)
  1. METHOTREXATE [Suspect]
     Active Substance: METHOTREXATE
     Indication: Dermatomyositis
     Route: 065
  2. METHOTREXATE [Suspect]
     Active Substance: METHOTREXATE
     Indication: Immunosuppressant drug therapy
  3. TOFACITINIB [Suspect]
     Active Substance: TOFACITINIB
     Indication: Dermatomyositis
     Route: 065
  4. HYDROXYCHLOROQUINE [Suspect]
     Active Substance: HYDROXYCHLOROQUINE
     Indication: Dermatomyositis
     Route: 065
  5. HYDROXYCHLOROQUINE [Suspect]
     Active Substance: HYDROXYCHLOROQUINE
     Indication: Immunosuppressant drug therapy
  6. IMMUNE GLOBULIN NOS [Suspect]
     Active Substance: IMMUNE GLOBULIN NOS
     Indication: Dermatomyositis
     Route: 042
  7. IMMUNE GLOBULIN NOS [Suspect]
     Active Substance: IMMUNE GLOBULIN NOS
     Indication: Immunosuppressant drug therapy
  8. MYCOPHENOLATE MOFETIL [Suspect]
     Active Substance: MYCOPHENOLATE MOFETIL
     Indication: Dermatomyositis
     Route: 065
  9. MYCOPHENOLATE MOFETIL [Suspect]
     Active Substance: MYCOPHENOLATE MOFETIL
     Indication: Immunosuppressant drug therapy
  10. PREDNISONE [Suspect]
     Active Substance: PREDNISONE
     Indication: Dermatomyositis
     Route: 065

REACTIONS (1)
  - Drug ineffective [Unknown]
